FAERS Safety Report 9797036 (Version 1)
Quarter: 2014Q1

REPORT INFORMATION
  Report Type: Spontaneous
  Country: US (occurrence: None)
  Receive Date: 20140102
  Receipt Date: 20140102
  Transmission Date: 20141002
  Serious: Yes (Life-Threatening, Hospitalization)
  Sender: FDA-Public Use
  Company Number: None

PATIENT
  Age: 81 Year
  Sex: Male

DRUGS (2)
  1. BRINTELLIX [Suspect]
     Indication: MAJOR DEPRESSION
     Dates: start: 20131230
  2. BRINTELLIX [Suspect]
     Indication: PROPHYLAXIS
     Dates: start: 20131230

REACTIONS (1)
  - Haemorrhagic stroke [None]
